FAERS Safety Report 11535046 (Version 3)
Quarter: 2015Q4

REPORT INFORMATION
  Report Type: Spontaneous
  Country: GB (occurrence: GB)
  Receive Date: 20150922
  Receipt Date: 20151019
  Transmission Date: 20160304
  Serious: Yes (Hospitalization)
  Sender: FDA-Public Use
  Company Number: GB-JNJFOC-20150812952

PATIENT
  Sex: Male

DRUGS (8)
  1. BISOPROLOL [Concomitant]
     Active Substance: BISOPROLOL
     Indication: ESSENTIAL HYPERTENSION
     Route: 065
  2. HUMULIN M3 [Concomitant]
     Active Substance: INSULIN HUMAN
     Indication: TYPE 2 DIABETES MELLITUS
     Dosage: 100 UNITS/ML SUSPENSION FOR INJECTION 3 ML CARTRIDGES
     Route: 050
  3. SILDENAFIL. [Concomitant]
     Active Substance: SILDENAFIL
     Indication: ERECTILE DYSFUNCTION
     Dosage: TAKE 1 AS DIRECTED
     Route: 065
  4. HUMULIN N [Concomitant]
     Active Substance: INSULIN HUMAN
     Indication: DIABETES MELLITUS
     Route: 065
  5. NICORANDIL [Concomitant]
     Active Substance: NICORANDIL
     Indication: ANGINA PECTORIS
     Route: 065
  6. INVOKANA [Suspect]
     Active Substance: CANAGLIFLOZIN
     Indication: TYPE 2 DIABETES MELLITUS
     Route: 048
     Dates: start: 20150804, end: 20150814
  7. LACIDIPINE [Concomitant]
     Active Substance: LACIDIPINE
     Indication: ESSENTIAL HYPERTENSION
     Route: 065
  8. LANSOPRAZOLE. [Concomitant]
     Active Substance: LANSOPRAZOLE
     Indication: DIAPHRAGMATIC HERNIA
     Dosage: GASTRO-RESISTANT CAPSULES
     Route: 065

REACTIONS (12)
  - Joint stiffness [Recovered/Resolved]
  - Muscular weakness [Recovered/Resolved]
  - Abasia [Recovering/Resolving]
  - Hemiparesis [Recovering/Resolving]
  - Dizziness [Unknown]
  - Malaise [Unknown]
  - Headache [Recovered/Resolved]
  - Blood glucose increased [Unknown]
  - Arthralgia [Unknown]
  - Pain in extremity [Unknown]
  - Balance disorder [Unknown]
  - Heart rate decreased [Unknown]

NARRATIVE: CASE EVENT DATE: 20150808
